FAERS Safety Report 6848602-7 (Version None)
Quarter: 2010Q3

REPORT INFORMATION
  Report Type: 
  Country: None (occurrence: None)
  Receive Date: 20100716
  Receipt Date: 20100707
  Transmission Date: 20110219
  Serious: Yes (Hospitalization)
  Sender: FDA-Public Use
  Company Number: ES-PFIZER INC-2010069170

PATIENT
  Age: 75 Year
  Sex: Female

DRUGS (2)
  1. DOXYCYCLINE HYCLATE [Suspect]
     Dosage: 200 MG/DAY
     Route: 048
  2. LEVOFLOXACIN [Concomitant]
     Dosage: 500MG/DAY
     Route: 048

REACTIONS (1)
  - PANCREATITIS ACUTE [None]
